FAERS Safety Report 10075610 (Version 2)
Quarter: 2020Q3

REPORT INFORMATION
  Report Type: Report from Study
  Country: FR (occurrence: FR)
  Receive Date: 20140414
  Receipt Date: 20140502
  Transmission Date: 20201104
  Serious: Yes (Hospitalization)
  Sender: FDA-Public Use
  Company Number: FR-JNJFOC-20140404504

PATIENT
  Age: 28 Year
  Sex: Female
  Weight: 66 kg

DRUGS (18)
  1. INEXIUM [Concomitant]
     Active Substance: ESOMEPRAZOLE
     Indication: CROHN^S DISEASE
     Route: 048
     Dates: start: 20100611
  2. TOPALGIC (FRANCE) [Concomitant]
     Active Substance: TRAMADOL HYDROCHLORIDE
     Indication: CROHN^S DISEASE
     Route: 048
     Dates: start: 20120902
  3. IXPRIM [Concomitant]
     Active Substance: ACETAMINOPHEN\TRAMADOL HYDROCHLORIDE
     Route: 048
     Dates: start: 20120826
  4. USTEKINUMAB [Suspect]
     Active Substance: USTEKINUMAB
     Indication: CROHN^S DISEASE
     Dosage: 16:27
     Route: 065
     Dates: start: 20120718
  5. ESTREVA [Concomitant]
     Active Substance: ESTRADIOL
     Route: 061
     Dates: start: 20130313
  6. CORTANCYL [Concomitant]
     Active Substance: PREDNISONE
     Dosage: 10 MG
     Route: 048
     Dates: start: 20121212, end: 20121218
  7. DOMPERIDONE [Concomitant]
     Active Substance: DOMPERIDONE
     Indication: CROHN^S DISEASE
     Route: 048
     Dates: start: 201307
  8. CORTANCYL [Concomitant]
     Active Substance: PREDNISONE
     Dosage: 20 MG
     Route: 048
     Dates: start: 20120508, end: 20121108
  9. HYDROCORTISONE. [Concomitant]
     Active Substance: HYDROCORTISONE
     Indication: PROPHYLAXIS
     Route: 048
     Dates: start: 20130117
  10. CORTANCYL [Concomitant]
     Active Substance: PREDNISONE
     Route: 048
     Dates: start: 20121109, end: 20121120
  11. USTEKINUMAB [Suspect]
     Active Substance: USTEKINUMAB
     Route: 065
  12. TRIMEBUTINE [Concomitant]
     Active Substance: TRIMEBUTINE
     Indication: CROHN^S DISEASE
     Route: 048
     Dates: start: 20121116
  13. CORTANCYL [Concomitant]
     Active Substance: PREDNISONE
     Dosage: 5 MG
     Route: 048
     Dates: start: 20130109, end: 20130116
  14. MODULEN [Concomitant]
     Indication: CROHN^S DISEASE
     Route: 048
     Dates: start: 20120419
  15. CORTANCYL [Concomitant]
     Active Substance: PREDNISONE
     Dosage: 8 MG
     Route: 048
     Dates: start: 20121219, end: 20130108
  16. FERINJECT [Concomitant]
     Active Substance: FERRIC CARBOXYMALTOSE
     Indication: ANAEMIA PROPHYLAXIS
     Route: 048
     Dates: start: 20131128, end: 20131128
  17. IMUREL [Concomitant]
     Active Substance: AZATHIOPRINE SODIUM
     Route: 048
     Dates: start: 20120419, end: 20121108
  18. PRIMPERAN [Concomitant]
     Active Substance: METOCLOPRAMIDE HYDROCHLORIDE
     Route: 048
     Dates: start: 20120711, end: 201207

REACTIONS (1)
  - Ileal stenosis [Recovered/Resolved]

NARRATIVE: CASE EVENT DATE: 20140311
